FAERS Safety Report 20657055 (Version 1)
Quarter: 2022Q1

REPORT INFORMATION
  Report Type: Report from Study
  Country: IN (occurrence: IN)
  Receive Date: 20220331
  Receipt Date: 20220331
  Transmission Date: 20220424
  Serious: Yes (Death, Other)
  Sender: FDA-Public Use
  Company Number: IN-BRISTOL-MYERS SQUIBB COMPANY-2022-010742

PATIENT
  Age: 71 Year
  Sex: Male
  Weight: 66.5 kg

DRUGS (2)
  1. NIVOLUMAB [Suspect]
     Active Substance: NIVOLUMAB
     Indication: Squamous cell carcinoma of head and neck
     Dosage: 2 WEEKLY
     Route: 042
     Dates: start: 20211113
  2. NIVOLUMAB\RELATLIMAB-RMBW [Suspect]
     Active Substance: NIVOLUMAB\RELATLIMAB-RMBW
     Indication: Squamous cell carcinoma of head and neck
     Dosage: 2 WEEKLY
     Route: 042
     Dates: start: 20211113

REACTIONS (2)
  - Death [Fatal]
  - Prescribed overdose [Unknown]
